FAERS Safety Report 8175137-4 (Version None)
Quarter: 2012Q1

REPORT INFORMATION
  Report Type: 
  Country: None (occurrence: None)
  Receive Date: 20120229
  Receipt Date: 20120223
  Transmission Date: 20120608
  Serious: Yes (Death, Life-Threatening, Hospitalization, Other)
  Sender: FDA-Public Use
  Company Number: PHHY2012ES015488

PATIENT
  Age: 73 Year
  Sex: Female

DRUGS (6)
  1. DIOVAN [Suspect]
     Indication: CARDIAC FAILURE
     Dosage: 160 MG, DAILY
     Route: 048
     Dates: start: 20090301, end: 20090723
  2. FUROSEMIDE [Interacting]
     Dosage: 160 MG, DAILY
     Route: 048
     Dates: start: 20090625, end: 20090804
  3. SINTROM [Concomitant]
     Indication: ATRIAL FIBRILLATION
     Route: 048
     Dates: end: 20090804
  4. DIGOXIN [Interacting]
     Indication: ATRIAL FIBRILLATION
     Dosage: 1.25 MG
     Route: 048
     Dates: end: 20090804
  5. FUROSEMIDE [Interacting]
     Indication: CARDIAC FAILURE
     Dosage: 60 MG, DAILY
     Route: 048
     Dates: end: 20090624
  6. ALDACTONE [Interacting]
     Indication: CARDIAC FAILURE
     Dosage: 100 MG, DAILY
     Route: 048
     Dates: end: 20090723

REACTIONS (20)
  - PULMONARY ARTERIAL HYPERTENSION [None]
  - TOXICITY TO VARIOUS AGENTS [None]
  - CENTRAL VENOUS PRESSURE INCREASED [None]
  - HAEMOGLOBIN DECREASED [None]
  - DISORIENTATION [None]
  - AORTIC VALVE STENOSIS [None]
  - RENAL FAILURE ACUTE [None]
  - HYPERKALAEMIA [None]
  - INFERIOR VENA CAVA DILATATION [None]
  - RIGHT ATRIAL DILATATION [None]
  - DYSPNOEA [None]
  - OEDEMA PERIPHERAL [None]
  - AORTIC VALVE DISEASE [None]
  - BLOOD PRESSURE DECREASED [None]
  - DRUG INTERACTION [None]
  - CARDIAC FAILURE [None]
  - DECREASED APPETITE [None]
  - TRICUSPID VALVE INCOMPETENCE [None]
  - ASTHENIA [None]
  - SOMNOLENCE [None]
